FAERS Safety Report 18756641 (Version 12)
Quarter: 2021Q3

REPORT INFORMATION
  Report Type: Report from Study
  Country: JP (occurrence: JP)
  Receive Date: 20210119
  Receipt Date: 20210805
  Transmission Date: 20211014
  Serious: Yes (Death, Hospitalization)
  Sender: FDA-Public Use
  Company Number: JP-ROCHE-2746970

PATIENT
  Age: 66 Year
  Sex: Male
  Weight: 56.5 kg

DRUGS (23)
  1. LANSOPRAZOLE. [Concomitant]
     Active Substance: LANSOPRAZOLE
     Indication: GASTROOESOPHAGEAL REFLUX DISEASE
     Dates: start: 20201020
  2. POLARAMINE [Concomitant]
     Active Substance: DEXCHLORPHENIRAMINE MALEATE
     Indication: PREMEDICATION
     Dates: start: 20210129, end: 20210129
  3. ACELIO [Concomitant]
     Active Substance: ACETAMINOPHEN
     Indication: PREMEDICATION
     Dosage: BAG
     Route: 042
     Dates: start: 20210129, end: 20210129
  4. FAMOTIDINE. [Concomitant]
     Active Substance: FAMOTIDINE
     Dates: start: 20210219, end: 20210219
  5. HEPARINOID [Concomitant]
     Active Substance: CHONDROITIN SULFATE (BOVINE)
     Indication: SENILE PRURITUS
     Dosage: OIL BASED CREAM
     Dates: start: 2019
  6. BETAMETHASONE BUTYRATE PROPIONATE [Concomitant]
     Active Substance: BETAMETHASONE BUTYRATE PROPIONATE
     Indication: SENILE PRURITUS
     Route: 062
     Dates: start: 2019
  7. PACLITAXEL. [Concomitant]
     Active Substance: PACLITAXEL
     Dates: start: 20210318, end: 20210402
  8. HIRUDOID [Concomitant]
     Active Substance: GLYCOSAMINOGLYCANS
     Indication: SENILE PRURITUS
     Dates: start: 20200925
  9. RINDERON VG [Concomitant]
     Active Substance: BETAMETHASONE VALERATE\GENTAMICIN SULFATE
     Indication: SENILE PRURITUS
     Route: 062
     Dates: start: 20201108
  10. ACELIO [Concomitant]
     Active Substance: ACETAMINOPHEN
     Indication: PYREXIA
     Dosage: BAG
     Route: 042
     Dates: start: 20210219, end: 20210219
  11. GATIFLO [Concomitant]
     Active Substance: GATIFLOXACIN
     Indication: HERPES ZOSTER
     Route: 047
     Dates: start: 20210226
  12. BRONUCK [Concomitant]
     Active Substance: BROMFENAC SODIUM
     Indication: HERPES ZOSTER
     Route: 047
     Dates: start: 20210226
  13. ACICLOVIR [Concomitant]
     Active Substance: ACYCLOVIR
     Indication: HERPES ZOSTER
     Dates: start: 20210226
  14. ATEZOLIZUMAB. [Suspect]
     Active Substance: ATEZOLIZUMAB
     Indication: OESOPHAGEAL SQUAMOUS CELL CARCINOMA
     Dosage: ON THE SAME DAY, HE RECEIVED MOST RECENT DOSE (1200 MG) OF ATEZOLIZUMAB.
     Route: 041
     Dates: start: 20201218
  15. OMEPRAZOLE. [Concomitant]
     Active Substance: OMEPRAZOLE
     Indication: GASTROOESOPHAGEAL REFLUX DISEASE
     Dates: start: 20210108, end: 20210118
  16. FAMOTIDINE. [Concomitant]
     Active Substance: FAMOTIDINE
     Indication: PREMEDICATION
     Dates: start: 20210129, end: 20210129
  17. TIRAGOLUMAB. [Suspect]
     Active Substance: TIRAGOLUMAB
     Indication: OESOPHAGEAL SQUAMOUS CELL CARCINOMA
     Dosage: ON THE SAME DAY, HE RECEIVED THE MOST RECENT DOSE (600 MG) OF TIRAGOLUMAB.
     Route: 042
     Dates: start: 20201218
  18. FLUMETHOLON [Concomitant]
     Active Substance: FLUOROMETHOLONE
     Indication: HERPES ZOSTER
     Dosage: DOSE FORM: LIQUID
     Route: 047
     Dates: start: 20210226
  19. RESTAMIN [Concomitant]
     Active Substance: DIPHENHYDRAMINE
     Indication: SENILE PRURITUS
     Dates: start: 20201108
  20. SODIUM CHLORIDE. [Concomitant]
     Active Substance: SODIUM CHLORIDE
     Indication: FEEDING TUBE USER
     Dates: start: 20200917
  21. CALONAL [Concomitant]
     Active Substance: ACETAMINOPHEN
     Indication: PYREXIA
     Dates: start: 20201220, end: 20210108
  22. POLARAMINE [Concomitant]
     Active Substance: DEXCHLORPHENIRAMINE MALEATE
     Dates: start: 20210219, end: 20210219
  23. ACELIO [Concomitant]
     Active Substance: ACETAMINOPHEN
     Dosage: BAG
     Route: 042
     Dates: start: 20210108, end: 20210111

REACTIONS (2)
  - Radiation pneumonitis [Not Recovered/Not Resolved]
  - Oesophageal rupture [Recovered/Resolved]

NARRATIVE: CASE EVENT DATE: 20210108
